FAERS Safety Report 5068355-5 (Version None)
Quarter: 2006Q3

REPORT INFORMATION
  Report Type: 
  Country: None (occurrence: None)
  Receive Date: 20060802
  Receipt Date: 20050815
  Transmission Date: 20061208
  Serious: No
  Sender: FDA-Public Use
  Company Number: US-BRISTOL-MYERS SQUIBB COMPANY-13078407

PATIENT
  Age: 58 Year
  Sex: Female
  Weight: 64 kg

DRUGS (11)
  1. COUMADIN [Suspect]
     Dates: start: 20050705
  2. CLARINEX [Concomitant]
  3. DARVOCET [Concomitant]
  4. KLONOPIN [Concomitant]
     Dosage: IF NEEDED
  5. NASACORT [Concomitant]
     Dosage: 2 SPRAYS EACH NOSTRIL ONCE DAILY
     Route: 045
  6. PREMARIN [Concomitant]
  7. CELEXA [Concomitant]
  8. SENOKOT [Concomitant]
  9. SYNTHROID [Concomitant]
     Dosage: 0.1 MG SIX DAYS PER WEEK AND 0.5 MG ON SUNDAY
  10. ZANTAC [Concomitant]
  11. ZETIA [Concomitant]

REACTIONS (2)
  - INTERNATIONAL NORMALISED RATIO FLUCTUATION [None]
  - LETHARGY [None]
